FAERS Safety Report 13825350 (Version 3)
Quarter: 2020Q3

REPORT INFORMATION
  Report Type: Report from Study
  Country: KR (occurrence: KR)
  Receive Date: 20170802
  Receipt Date: 20170814
  Transmission Date: 20201104
  Serious: Yes (Hospitalization, Other)
  Sender: FDA-Public Use
  Company Number: KR-ASTRAZENECA-2017SE78595

PATIENT
  Age: 45 Year
  Sex: Male

DRUGS (3)
  1. VIREAD [Concomitant]
     Active Substance: TENOFOVIR DISOPROXIL FUMARATE
     Indication: HEPATITIS B
     Route: 048
     Dates: start: 20170601
  2. MEDI4736 [Suspect]
     Active Substance: DURVALUMAB
     Indication: HEPATOCELLULAR CARCINOMA
     Route: 042
     Dates: start: 20170613
  3. TREMELIMUMAB. [Suspect]
     Active Substance: TREMELIMUMAB
     Indication: HEPATOCELLULAR CARCINOMA
     Route: 042
     Dates: start: 20170613

REACTIONS (1)
  - Tumour rupture [Recovered/Resolved]

NARRATIVE: CASE EVENT DATE: 20170731
